FAERS Safety Report 8481821-5 (Version None)
Quarter: 2012Q3

REPORT INFORMATION
  Report Type: 
  Country: None (occurrence: None)
  Receive Date: 20120702
  Receipt Date: 20120628
  Transmission Date: 20120928
  Serious: No
  Sender: FDA-Public Use
  Company Number: US-PFIZER INC-2012115638

PATIENT
  Sex: Female
  Weight: 54.422 kg

DRUGS (5)
  1. CHANTIX [Suspect]
     Dosage: UNK
     Route: 048
  2. VICODIN [Concomitant]
     Indication: BACK PAIN
  3. CHANTIX [Suspect]
     Dosage: UNK
     Route: 048
     Dates: start: 20120518, end: 20120601
  4. CHANTIX [Suspect]
     Indication: SMOKING CESSATION THERAPY
     Dosage: 0.5 MG, 1X/DAY
     Route: 048
  5. VICODIN [Concomitant]
     Indication: NECK PAIN
     Dosage: UNK, 1X/DAY

REACTIONS (1)
  - NAUSEA [None]
